FAERS Safety Report 6213906-8 (Version None)
Quarter: 2009Q2

REPORT INFORMATION
  Report Type: 
  Country: None (occurrence: None)
  Receive Date: 20090601
  Receipt Date: 20090601
  Transmission Date: 20091009
  Serious: Yes (Life-Threatening, Disabling)
  Sender: FDA-Public Use
  Company Number: None

PATIENT
  Age: 63 Year
  Sex: Male
  Weight: 81.6475 kg

DRUGS (1)
  1. AVODART [Suspect]
     Indication: BENIGN PROSTATIC HYPERPLASIA
     Dosage: 0.5 MG 1/DAY PO
     Route: 048
     Dates: start: 20080922, end: 20090530

REACTIONS (4)
  - CATARACT [None]
  - DRY EYE [None]
  - PROSTATE CANCER [None]
  - VISUAL IMPAIRMENT [None]
